FAERS Safety Report 14316301 (Version 3)
Quarter: 2018Q1

REPORT INFORMATION
  Report Type: Report from Study
  Country: None (occurrence: CA)
  Receive Date: 20171222
  Receipt Date: 20180112
  Transmission Date: 20180509
  Serious: Yes (Death, Hospitalization, Congenital Anomaly, Other)
  Sender: FDA-Public Use
  Company Number: CA-ABBVIE-17K-028-2202383-00

PATIENT
  Age: 35 Year
  Sex: Female

DRUGS (5)
  1. ARANESP [Concomitant]
     Active Substance: DARBEPOETIN ALFA
     Indication: HAEMOGLOBIN DECREASED
  2. KAYEXALATE [Suspect]
     Active Substance: SODIUM POLYSTYRENE SULFONATE
     Indication: PRODUCT USED FOR UNKNOWN INDICATION
     Route: 065
  3. FRAGMIN [Concomitant]
     Active Substance: DALTEPARIN SODIUM
     Indication: PRODUCT USED FOR UNKNOWN INDICATION
     Dosage: DAILY
  4. HUMIRA [Suspect]
     Active Substance: ADALIMUMAB
     Indication: CROHN^S DISEASE
     Route: 058
     Dates: start: 20140823, end: 20170916
  5. CYCLOSPORINE. [Concomitant]
     Active Substance: CYCLOSPORINE
     Indication: PRODUCT USED FOR UNKNOWN INDICATION
     Dosage: DAILY

REACTIONS (51)
  - Metabolic acidosis [Unknown]
  - Vitamin A deficiency [Unknown]
  - Respiratory distress [Unknown]
  - Orthopnoea [Not Recovered/Not Resolved]
  - Device dependence [Unknown]
  - Blood alkaline phosphatase increased [Unknown]
  - Aplastic anaemia [Fatal]
  - Dyspnoea paroxysmal nocturnal [Not Recovered/Not Resolved]
  - Angle closure glaucoma [Unknown]
  - Weight decreased [Unknown]
  - Blood albumin decreased [Unknown]
  - Procedural hypotension [Unknown]
  - Bicytopenia [Unknown]
  - Apallic syndrome [Not Recovered/Not Resolved]
  - Post procedural complication [Unknown]
  - Pleural effusion [Unknown]
  - Sepsis [Unknown]
  - Chronic kidney disease [Fatal]
  - Cardiac arrest [Not Recovered/Not Resolved]
  - Pneumonia necrotising [Unknown]
  - Device related sepsis [Unknown]
  - Oedema peripheral [Not Recovered/Not Resolved]
  - Blood creatinine increased [Unknown]
  - Dehydration [Unknown]
  - Delirium [Not Recovered/Not Resolved]
  - Haemodynamic instability [Unknown]
  - Night blindness [Unknown]
  - Deep vein thrombosis [Unknown]
  - Escherichia infection [Unknown]
  - Frequent bowel movements [Unknown]
  - Oral candidiasis [Unknown]
  - Fatigue [Unknown]
  - Corneal abrasion [Unknown]
  - Pneumonia cryptococcal [Unknown]
  - Hypotension [Unknown]
  - Sinus tachycardia [Not Recovered/Not Resolved]
  - Hypervolaemia [Unknown]
  - Asthenia [Not Recovered/Not Resolved]
  - Cachexia [Unknown]
  - Pyrexia [Unknown]
  - Blood lactate dehydrogenase decreased [Unknown]
  - Thrombosis [Unknown]
  - Diarrhoea [Unknown]
  - Pneumothorax [Unknown]
  - Haemoglobin decreased [Unknown]
  - Thrombocytopenia [Unknown]
  - Streptococcal endocarditis [Unknown]
  - Lung abscess [Unknown]
  - Constipation [Unknown]
  - Malnutrition [Unknown]
  - Gamma-glutamyltransferase [Unknown]

NARRATIVE: CASE EVENT DATE: 2017
